FAERS Safety Report 16339160 (Version 1)
Quarter: 2019Q2

REPORT INFORMATION
  Report Type: Spontaneous
  Country: JP (occurrence: JP)
  Receive Date: 20190521
  Receipt Date: 20190521
  Transmission Date: 20190711
  Serious: Yes (Other)
  Sender: FDA-Public Use
  Company Number: JP-PFIZER INC-2019206220

PATIENT
  Age: 77 Year
  Sex: Male
  Weight: 53 kg

DRUGS (19)
  1. CEFTRIAXONE SODIUM PFIZER [Suspect]
     Active Substance: CEFTRIAXONE SODIUM
     Indication: CHOLECYSTITIS
     Dosage: 1 G, 1X/DAY
     Route: 042
     Dates: start: 20180802, end: 20180821
  2. WARFARIN [Interacting]
     Active Substance: WARFARIN
     Dosage: 1.25 MG, DAILY
     Route: 048
     Dates: start: 20180729, end: 20180730
  3. WARFARIN [Interacting]
     Active Substance: WARFARIN
     Dosage: 1 MG, DAILY
     Route: 048
     Dates: start: 20180818
  4. AMLODIPINE BESILATE [Concomitant]
     Active Substance: AMLODIPINE BESYLATE
  5. FEBURIC [Concomitant]
     Active Substance: FEBUXOSTAT
  6. TRAMCET [Concomitant]
     Active Substance: ACETAMINOPHEN\TRAMADOL
  7. PARIET [Concomitant]
     Active Substance: RABEPRAZOLE SODIUM
  8. SAMSCA [Concomitant]
     Active Substance: TOLVAPTAN
  9. LASIX [Concomitant]
     Active Substance: FUROSEMIDE
  10. WARFARIN [Interacting]
     Active Substance: WARFARIN
     Dosage: 2 MG, DAILY
     Route: 048
     Dates: start: 20180726
  11. FLUMARIN [FLOMOXEF SODIUM] [Suspect]
     Active Substance: FLOMOXEF SODIUM
     Indication: VASCULAR DEVICE INFECTION
     Dosage: 1 G, 1X/DAY
     Route: 042
     Dates: start: 20180723, end: 20180731
  12. ATELEC [Concomitant]
     Active Substance: CILNIDIPINE
  13. HARNAL [Concomitant]
     Active Substance: TAMSULOSIN HYDROCHLORIDE
  14. BROTIZOLAM [Concomitant]
     Active Substance: BROTIZOLAM
  15. WARFARIN [Interacting]
     Active Substance: WARFARIN
     Indication: PROPHYLAXIS
     Dosage: 0.75 MG, DAILY
     Route: 048
     Dates: start: 20180721
  16. WARFARIN [Interacting]
     Active Substance: WARFARIN
     Dosage: 1.25 MG, DAILY
     Route: 048
     Dates: start: 20180723
  17. WARFARIN [Interacting]
     Active Substance: WARFARIN
     Dosage: 1.25 MG, DAILY
     Route: 048
     Dates: start: 20180807
  18. MERCAZOLE [THIAMAZOLE] [Concomitant]
     Active Substance: METHIMAZOLE
  19. BISOPROLOL [Concomitant]
     Active Substance: BISOPROLOL

REACTIONS (2)
  - International normalised ratio increased [Recovering/Resolving]
  - Drug interaction [Recovering/Resolving]

NARRATIVE: CASE EVENT DATE: 20180815
